FAERS Safety Report 7600953-4 (Version None)
Quarter: 2011Q3

REPORT INFORMATION
  Report Type: 
  Country: None (occurrence: None)
  Receive Date: 20110706
  Receipt Date: 20110706
  Transmission Date: 20111222
  Serious: Yes (Other)
  Sender: FDA-Public Use
  Company Number: None

PATIENT
  Sex: Male
  Weight: 91.173 kg

DRUGS (4)
  1. OXALIPLATIN [Suspect]
     Indication: RECTAL CANCER STAGE IV
     Dosage: 245.3 MG Q3WKS IV
     Route: 042
     Dates: start: 20110426
  2. OXALIPLATIN [Suspect]
     Indication: RECTAL CANCER STAGE IV
     Dosage: 245.3 MG Q3WKS IV
     Route: 042
     Dates: start: 20110602
  3. OXALIPLATIN [Suspect]
     Indication: RECTAL CANCER STAGE IV
     Dosage: 245.3 MG Q3WKS IV
     Route: 042
     Dates: start: 20110426
  4. OXALIPLATIN [Suspect]
     Indication: RECTAL CANCER STAGE IV
     Dosage: 245.3 MG Q3WKS IV
     Route: 042
     Dates: start: 20110602

REACTIONS (4)
  - CHILLS [None]
  - NAUSEA [None]
  - CYANOSIS [None]
  - OXYGEN SATURATION DECREASED [None]
